FAERS Safety Report 25078709 (Version 1)
Quarter: 2025Q1

REPORT INFORMATION
  Report Type: Spontaneous
  Country: FR (occurrence: FR)
  Receive Date: 20250314
  Receipt Date: 20250314
  Transmission Date: 20250409
  Serious: Yes (Death, Other)
  Sender: AMGEN
  Company Number: FR-AMGEN-FRASP2025045275

PATIENT

DRUGS (1)
  1. ADALIMUMAB [Suspect]
     Active Substance: ADALIMUMAB
     Indication: VEXAS syndrome
     Route: 065

REACTIONS (14)
  - Neoplasm malignant [Fatal]
  - Infection [Fatal]
  - Cardiac disorder [Fatal]
  - Blood disorder [Fatal]
  - Death [Fatal]
  - Thrombosis [Unknown]
  - Adverse event [Unknown]
  - Systemic toxicity [Unknown]
  - Drug effective for unapproved indication [Unknown]
  - Drug ineffective for unapproved indication [Unknown]
  - Therapy partial responder [Unknown]
  - Injection site reaction [Unknown]
  - Therapeutic product effect decreased [Unknown]
  - Off label use [Unknown]
